FAERS Safety Report 23514516 (Version 2)
Quarter: 2024Q2

REPORT INFORMATION
  Report Type: Spontaneous
  Country: US (occurrence: US)
  Receive Date: 20240212
  Receipt Date: 20240405
  Transmission Date: 20240716
  Serious: Yes (Hospitalization, Other)
  Sender: FDA-Public Use
  Company Number: US-ELI_LILLY_AND_COMPANY-US202402001066

PATIENT
  Age: 76 Year
  Sex: Female

DRUGS (3)
  1. TALTZ [Suspect]
     Active Substance: IXEKIZUMAB
     Indication: Psoriasis
     Dosage: 80 MG, UNKNOWN
     Route: 065
     Dates: start: 202202
  2. CIPROFLOXACIN [Suspect]
     Active Substance: CIPROFLOXACIN
     Indication: Diverticulitis
     Dosage: UNK UNK, UNKNOWN
     Route: 065
  3. SUXAMETHONIUM BROMIDE [Suspect]
     Active Substance: SUXAMETHONIUM BROMIDE
     Indication: Diverticulitis
     Dosage: UNK UNK, UNKNOWN
     Route: 065

REACTIONS (5)
  - Diverticulitis [Recovered/Resolved]
  - Uterine cyst [Recovering/Resolving]
  - Cyst rupture [Recovering/Resolving]
  - Sepsis [Unknown]
  - Hypersensitivity [Recovering/Resolving]

NARRATIVE: CASE EVENT DATE: 20230318
